FAERS Safety Report 9916951 (Version 1)
Quarter: 2014Q1

REPORT INFORMATION
  Report Type: Spontaneous
  Country: JP (occurrence: JP)
  Receive Date: 20140221
  Receipt Date: 20140221
  Transmission Date: 20141002
  Serious: Yes (Disabling, Other)
  Sender: FDA-Public Use
  Company Number: JP-ACTAVIS-2014-02602

PATIENT
  Age: 40 Year
  Sex: Female

DRUGS (2)
  1. TRIAMCINOLONE ACETONIDE (AMALLC) [Suspect]
     Indication: TRIGGER FINGER
     Dosage: 20 MG, ONCE A MONTH; APPROXIMATELY 30 TIMES
  2. LIDOCAINE [Concomitant]
     Indication: TRIGGER FINGER
     Dosage: 0.5 ML, ONCE A MONTH; APPROXIMATELY 30 TIMES

REACTIONS (4)
  - Tendon rupture [Recovering/Resolving]
  - Joint contracture [Recovering/Resolving]
  - Tendon injury [Recovering/Resolving]
  - Impaired healing [Recovering/Resolving]
